FAERS Safety Report 15469570 (Version 1)
Quarter: 2018Q4

REPORT INFORMATION
  Report Type: Spontaneous
  Country: CH (occurrence: CH)
  Receive Date: 20181005
  Receipt Date: 20181005
  Transmission Date: 20190205
  Serious: Yes (Other)
  Sender: FDA-Public Use
  Company Number: CH-GILEAD-2018-0364265

PATIENT
  Age: 52 Year
  Sex: Female

DRUGS (10)
  1. ZYPREXA [Concomitant]
     Active Substance: OLANZAPINE
  2. DACLATASVIR. [Suspect]
     Active Substance: DACLATASVIR
     Indication: CHRONIC HEPATITIS C
     Dosage: UNK
     Route: 065
     Dates: start: 201509, end: 201512
  3. REMERON [Concomitant]
     Active Substance: MIRTAZAPINE
  4. EPRIL PLUS [Concomitant]
  5. SOFOSBUVIR [Suspect]
     Active Substance: SOFOSBUVIR
     Indication: CHRONIC HEPATITIS C
     Dosage: UNK
     Route: 065
     Dates: start: 201509, end: 201512
  6. FOLIC ACID. [Concomitant]
     Active Substance: FOLIC ACID
  7. CALCIMAGON-D3 [Concomitant]
     Active Substance: CALCIUM\CHOLECALCIFEROL
  8. TRUVADA [Concomitant]
     Active Substance: EMTRICITABINE\TENOFOVIR DISOPROXIL FUMARATE
     Indication: HIV INFECTION
  9. TIVICAY [Concomitant]
     Active Substance: DOLUTEGRAVIR SODIUM
     Indication: HIV INFECTION
  10. IBUPROFEN. [Concomitant]
     Active Substance: IBUPROFEN

REACTIONS (2)
  - Genotype drug resistance test positive [Unknown]
  - Treatment failure [Unknown]
